FAERS Safety Report 24529865 (Version 1)
Quarter: 2024Q4

REPORT INFORMATION
  Report Type: Spontaneous
  Country: US (occurrence: None)
  Receive Date: 20241021
  Receipt Date: 20241021
  Transmission Date: 20250115
  Serious: Yes (Other)
  Sender: Public
  Company Number: None

PATIENT
  Sex: Female

DRUGS (11)
  1. BENLYSTA [Suspect]
     Active Substance: BELIMUMAB
     Indication: Product used for unknown indication
     Route: 058
     Dates: start: 20180712
  2. ALBUTEROL AER HFA [Concomitant]
  3. AMPHET/DEXTR TAB 10MG [Concomitant]
  4. AZATHIOPRINE [Concomitant]
     Active Substance: AZATHIOPRINE
  5. BAQSIMI ONE POW 3MG/DOSE [Concomitant]
  6. BENLYSTA INJ 200MG!ML [Concomitant]
  7. CELECOXIB CAP 200MG [Concomitant]
  8. CEVIMELINE CAP 30MG [Concomitant]
  9. CYANOCOBALAM INJ 1 000MCG [Concomitant]
  10. DULOXETINE CAP 60MG [Concomitant]
  11. EMGALITY INJ 120MG/ML [Concomitant]

REACTIONS (3)
  - Therapy non-responder [None]
  - Discomfort [None]
  - Therapy interrupted [None]
